FAERS Safety Report 17698890 (Version 1)
Quarter: 2020Q2

REPORT INFORMATION
  Report Type: Spontaneous
  Country: US (occurrence: US)
  Receive Date: 20200423
  Receipt Date: 20200423
  Transmission Date: 20200714
  Serious: Yes (Hospitalization)
  Sender: FDA-Public Use
  Company Number: None

PATIENT
  Age: 61 Year
  Sex: Female
  Weight: 81 kg

DRUGS (10)
  1. FISH OIL [Concomitant]
     Active Substance: FISH OIL
  2. SAW PALMETTO [Concomitant]
     Active Substance: HERBALS\SAW PALMETTO
  3. ZINC. [Concomitant]
     Active Substance: ZINC
  4. DOXYCYCLINE. [Suspect]
     Active Substance: DOXYCYCLINE
  5. LEVOTHYROXINE. [Concomitant]
     Active Substance: LEVOTHYROXINE
  6. MULTIVITAMIN [Concomitant]
     Active Substance: VITAMINS
  7. BIOTIN [Concomitant]
     Active Substance: BIOTIN
  8. COLLAGEN [Concomitant]
     Active Substance: COLLAGEN
  9. RANITIDINE. [Suspect]
     Active Substance: RANITIDINE
  10. VITAMIN C [Concomitant]
     Active Substance: ASCORBIC ACID

REACTIONS (5)
  - Pain [None]
  - Headache [None]
  - Reaction to colouring [None]
  - Eye swelling [None]
  - Rash pruritic [None]

NARRATIVE: CASE EVENT DATE: 20200211
